FAERS Safety Report 4558787-3 (Version None)
Quarter: 2005Q1

REPORT INFORMATION
  Report Type: 
  Country: None (occurrence: None)
  Receive Date: 20050121
  Receipt Date: 20040723
  Transmission Date: 20050727
  Serious: Yes (Hospitalization)
  Sender: FDA-Public Use
  Company Number: FR-GLAXOSMITHKLINE-B0340937A

PATIENT
  Age: 51 Year
  Sex: Female
  Weight: 56 kg

DRUGS (5)
  1. ZOPHREN [Suspect]
     Indication: NAUSEA
     Route: 065
  2. NEURONTIN [Suspect]
     Indication: NEUROPATHY PERIPHERAL
     Route: 048
     Dates: start: 20040421, end: 20040614
  3. TAXOTERE [Suspect]
     Indication: BREAST CANCER METASTATIC
     Dosage: 110MG CYCLIC
     Route: 042
     Dates: start: 20040511
  4. CAELYX [Suspect]
     Indication: BREAST CANCER METASTATIC
     Dosage: 70MG CYCLIC
     Route: 042
     Dates: start: 20040511
  5. BECILAN [Concomitant]
     Indication: PALMAR-PLANTAR ERYTHRODYSAESTHESIA SYNDROME
     Dosage: 250MG THREE TIMES PER DAY
     Route: 048
     Dates: start: 20040421

REACTIONS (15)
  - ABDOMINAL PAIN [None]
  - ANTINUCLEAR ANTIBODY POSITIVE [None]
  - APHTHOUS STOMATITIS [None]
  - CATHETER SITE INFECTION [None]
  - DIARRHOEA [None]
  - ERYTHEMA [None]
  - NIKOLSKY'S SIGN [None]
  - OEDEMA PERIPHERAL [None]
  - PAIN [None]
  - PAIN IN EXTREMITY [None]
  - PYREXIA [None]
  - RASH ERYTHEMATOUS [None]
  - SKIN EXFOLIATION [None]
  - STAPHYLOCOCCAL INFECTION [None]
  - STEVENS-JOHNSON SYNDROME [None]
